FAERS Safety Report 10268576 (Version 1)
Quarter: 2014Q2

REPORT INFORMATION
  Report Type: Spontaneous
  Country: US (occurrence: None)
  Receive Date: 20140627
  Receipt Date: 20140627
  Transmission Date: 20141212
  Serious: Yes (Other)
  Sender: FDA-Public Use
  Company Number: None

PATIENT
  Age: 28 Year
  Sex: Male

DRUGS (1)
  1. COLGATE BAKING SODA AND PEROXIDE WHITENING BRISK MINT [Suspect]
     Indication: DENTAL CARE
     Dates: start: 20140624, end: 20140624

REACTIONS (1)
  - Dysgeusia [None]
